FAERS Safety Report 4503255-8 (Version None)
Quarter: 2004Q4

REPORT INFORMATION
  Report Type: 
  Country: None (occurrence: None)
  Receive Date: 20041112
  Receipt Date: 20041029
  Transmission Date: 20050328
  Serious: Yes (Disabling)
  Sender: FDA-Public Use
  Company Number: 2004SE06110

PATIENT
  Age: 68 Year
  Sex: Female

DRUGS (4)
  1. DURA-ZOK [Suspect]
     Dosage: 150 MG DAILY PO
     Route: 048
     Dates: end: 20040311
  2. DIRA-ZOK [Suspect]
     Dosage: 200 MG DAILY PO
     Route: 048
     Dates: start: 20040311, end: 20040403
  3. DURA-ZOK [Suspect]
     Dosage: 150 MG DAILY PO
     Route: 048
     Dates: start: 20040403
  4. COAPROVEL [Concomitant]

REACTIONS (3)
  - COUGH [None]
  - HYPERTENSION [None]
  - PRURITUS [None]
